FAERS Safety Report 9343214 (Version 3)
Quarter: 2017Q2

REPORT INFORMATION
  Report Type: Report from Study
  Country: US (occurrence: US)
  Receive Date: 20130611
  Receipt Date: 20170609
  Transmission Date: 20170830
  Serious: Yes (Hospitalization, Other)
  Sender: FDA-Public Use
  Company Number: US-ASTRAZENECA-2010SE42830

PATIENT
  Age: 1021 Month
  Sex: Female
  Weight: 72.6 kg

DRUGS (38)
  1. ASPIRIN. [Concomitant]
     Active Substance: ASPIRIN
     Dosage: 325.0MG UNKNOWN
  2. POTASSIUM CHLORIDE. [Concomitant]
     Active Substance: POTASSIUM CHLORIDE
  3. AMIODARONE [Concomitant]
     Active Substance: AMIODARONE
     Indication: ATRIAL FIBRILLATION
     Dosage: 200.0MG UNKNOWN
  4. PLAVIX [Concomitant]
     Active Substance: CLOPIDOGREL BISULFATE
  5. NEXIUM [Suspect]
     Active Substance: ESOMEPRAZOLE MAGNESIUM
     Indication: GASTROOESOPHAGEAL REFLUX DISEASE
     Route: 048
  6. CRESTOR [Suspect]
     Active Substance: ROSUVASTATIN CALCIUM
     Indication: BLOOD CHOLESTEROL INCREASED
     Route: 048
  7. MOVANTIK [Suspect]
     Active Substance: NALOXEGOL OXALATE
     Indication: PAIN
     Route: 048
     Dates: start: 2015
  8. LYRICA [Concomitant]
     Active Substance: PREGABALIN
     Indication: PAIN
  9. TORSEMIDE. [Concomitant]
     Active Substance: TORSEMIDE
     Indication: DIURETIC THERAPY
     Dosage: 10 OR 20 MG
  10. SENEKOT [Concomitant]
     Indication: FAECES HARD
  11. LIPITOR [Concomitant]
     Active Substance: ATORVASTATIN CALCIUM
  12. NEXIUM [Suspect]
     Active Substance: ESOMEPRAZOLE MAGNESIUM
     Indication: GASTROOESOPHAGEAL REFLUX DISEASE
     Route: 048
  13. NEXIUM [Suspect]
     Active Substance: ESOMEPRAZOLE MAGNESIUM
     Indication: GASTROOESOPHAGEAL REFLUX DISEASE
     Dosage: 40.0MG UNKNOWN
     Route: 048
     Dates: start: 2008
  14. CRESTOR [Suspect]
     Active Substance: ROSUVASTATIN CALCIUM
     Indication: BLOOD CHOLESTEROL INCREASED
     Dosage: ONCE DAILY
     Route: 048
  15. PERCOCET [Concomitant]
     Active Substance: ACETAMINOPHEN\OXYCODONE HYDROCHLORIDE
     Indication: PAIN
     Dosage: 10/325
  16. MIRALAX [Concomitant]
     Active Substance: POLYETHYLENE GLYCOL 3350
     Indication: FAECES HARD
  17. MULTIVITAMIN [Concomitant]
     Active Substance: VITAMINS
  18. COQ10 [Concomitant]
     Active Substance: UBIDECARENONE
  19. VITAMIN D [Concomitant]
     Active Substance: CHOLECALCIFEROL
  20. TORSEMIDE. [Concomitant]
     Active Substance: TORSEMIDE
     Indication: BLADDER DISORDER
     Dosage: 10 OR 20 MG
  21. AMIODARONE [Concomitant]
     Active Substance: AMIODARONE
     Indication: ATRIAL FIBRILLATION
     Dosage: 200.0MG UNKNOWN
  22. MORPHINE [Concomitant]
     Active Substance: MORPHINE
  23. TOPROL XL [Suspect]
     Active Substance: METOPROLOL SUCCINATE
     Indication: CORONARY ARTERIAL STENT INSERTION
     Dosage: 50.0MG UNKNOWN
     Route: 048
     Dates: end: 201305
  24. CRESTOR [Suspect]
     Active Substance: ROSUVASTATIN CALCIUM
     Indication: BLOOD CHOLESTEROL INCREASED
     Dosage: 5.0MG UNKNOWN
     Route: 048
  25. FENTANYL. [Concomitant]
     Active Substance: FENTANYL
     Indication: CANCER PAIN
     Dosage: 50.0MG UNKNOWN
  26. ZYRTEC [Concomitant]
     Active Substance: CETIRIZINE HYDROCHLORIDE
     Indication: MULTIPLE ALLERGIES
     Dosage: 10.0MG UNKNOWN
  27. CALCIUM [Concomitant]
     Active Substance: CALCIUM
  28. NEXIUM [Suspect]
     Active Substance: ESOMEPRAZOLE MAGNESIUM
     Indication: GASTROOESOPHAGEAL REFLUX DISEASE
     Dosage: 40.0MG UNKNOWN
     Route: 048
     Dates: start: 2008
  29. LYRICA [Concomitant]
     Active Substance: PREGABALIN
     Indication: MUSCLE DISORDER
  30. LEVOTHYROXINE. [Concomitant]
     Active Substance: LEVOTHYROXINE
     Indication: THYROID DISORDER
     Dosage: 200.0UG UNKNOWN
  31. METOPROLOL TARTRATE. [Suspect]
     Active Substance: METOPROLOL TARTRATE
     Route: 048
  32. ISOSORBIDE. [Concomitant]
     Active Substance: ISOSORBIDE
     Indication: CARDIAC DISORDER
     Dosage: 60.0MG UNKNOWN
  33. VITAMIN B12 [Concomitant]
     Active Substance: CYANOCOBALAMIN
  34. COLACE [Concomitant]
     Active Substance: DOCUSATE SODIUM
  35. MIRALAX [Concomitant]
     Active Substance: POLYETHYLENE GLYCOL 3350
  36. RADIATION THERAPY [Suspect]
     Active Substance: RADIATION THERAPY
     Route: 065
  37. TEMAZEPAM. [Concomitant]
     Active Substance: TEMAZEPAM
     Indication: SLEEP DISORDER
     Dosage: 30.0MG UNKNOWN
  38. AMIODARONE [Concomitant]
     Active Substance: AMIODARONE
     Indication: ATRIAL FIBRILLATION
     Dosage: 400.0MG UNKNOWN

REACTIONS (27)
  - Atrial fibrillation [Unknown]
  - Breast cancer [Unknown]
  - Blood pressure abnormal [Unknown]
  - Blood electrolytes decreased [Unknown]
  - Dyspnoea [Unknown]
  - Oedema [Unknown]
  - Weight increased [Unknown]
  - Myalgia [Unknown]
  - Intentional product use issue [Unknown]
  - Thyroid cancer [Unknown]
  - Fibromyalgia [Unknown]
  - Blood magnesium decreased [Unknown]
  - Chest discomfort [Unknown]
  - Osteoporosis [Unknown]
  - Product use in unapproved indication [Unknown]
  - Oesophageal perforation [Unknown]
  - Wound [Unknown]
  - Staphylococcal infection [Unknown]
  - Pneumonia [Unknown]
  - Gait disturbance [Unknown]
  - Hypersensitivity [Unknown]
  - Arthritis [Unknown]
  - Vomiting [Unknown]
  - Hallucination [Unknown]
  - Malignant peritoneal neoplasm [Unknown]
  - Blood potassium decreased [Unknown]
  - Muscle disorder [Unknown]

NARRATIVE: CASE EVENT DATE: 201209
